FAERS Safety Report 24815108 (Version 1)
Quarter: 2025Q1

REPORT INFORMATION
  Report Type: Spontaneous
  Country: JP (occurrence: JP)
  Receive Date: 20250107
  Receipt Date: 20250107
  Transmission Date: 20250408
  Serious: Yes (Hospitalization)
  Sender: CHEPLAPHARM
  Company Number: JP-ROCHE-10000168271

PATIENT
  Age: 53 Year
  Sex: Male
  Weight: 64.4 kg

DRUGS (11)
  1. CAPECITABINE [Suspect]
     Active Substance: CAPECITABINE
     Indication: Colorectal cancer metastatic
     Route: 048
     Dates: start: 2023
  2. CAPECITABINE [Suspect]
     Active Substance: CAPECITABINE
     Indication: Colorectal cancer metastatic
     Dosage: 3300 MG, TWICE DAILY, DAYS 1-14, ORAL?DAILY DOSE: 6600 MILLIGRAM
     Route: 048
     Dates: start: 20230516, end: 20230706
  3. BEVACIZUMAB [Suspect]
     Active Substance: BEVACIZUMAB
     Indication: Colorectal cancer metastatic
     Route: 042
     Dates: start: 20230516
  4. OXALIPLATIN [Suspect]
     Active Substance: OXALIPLATIN
     Indication: Colorectal cancer metastatic
     Dosage: INFUSION, POWDER
     Route: 042
     Dates: start: 20230516
  5. DUTASTERIDE [Concomitant]
     Active Substance: DUTASTERIDE
  6. GLYCOSAMINOGLYCANS [Concomitant]
     Active Substance: GLYCOSAMINOGLYCANS
  7. UREA [Concomitant]
     Active Substance: UREA
  8. CALONAL [Concomitant]
     Active Substance: ACETAMINOPHEN
     Indication: Migraine
  9. METOCLOPRAMIDE [Concomitant]
     Active Substance: METOCLOPRAMIDE
  10. LEMBOREXANT [Concomitant]
     Active Substance: LEMBOREXANT
  11. MIYA-BM [Concomitant]
     Active Substance: CLOSTRIDIUM BUTYRICUM SPORES STRAIN M-55
     Indication: Diarrhoea

REACTIONS (1)
  - Clostridium difficile colitis [Recovered/Resolved]

NARRATIVE: CASE EVENT DATE: 20230707
